FAERS Safety Report 4311085-5 (Version None)
Quarter: 2004Q1

REPORT INFORMATION
  Report Type: 
  Country: None (occurrence: None)
  Receive Date: 20040302
  Receipt Date: 20040302
  Transmission Date: 20041129
  Serious: Yes (Hospitalization)
  Sender: FDA-Public Use
  Company Number: None

PATIENT
  Age: 55 Year
  Sex: Female
  Weight: 68 kg

DRUGS (6)
  1. LITHIUM [Suspect]
  2. BUPROPION (WELLBUTRIN SR) [Concomitant]
  3. DOXEPIN HCL [Concomitant]
  4. FLUOXETINE [Concomitant]
  5. QUETIAPINE [Concomitant]
  6. ESTRATEST [Concomitant]

REACTIONS (2)
  - FALL [None]
  - VOMITING [None]
